FAERS Safety Report 21952429 (Version 2)
Quarter: 2023Q1

REPORT INFORMATION
  Report Type: Spontaneous
  Country: GB (occurrence: GB)
  Receive Date: 20230203
  Receipt Date: 20230313
  Transmission Date: 20230418
  Serious: Yes (Other)
  Sender: FDA-Public Use
  Company Number: GB-Santen Oy-2023-GBR-000672

PATIENT
  Age: 77 Year
  Sex: Female

DRUGS (2)
  1. CYCLOSPORINE [Suspect]
     Active Substance: CYCLOSPORINE
     Indication: Product used for unknown indication
     Dosage: ONE DROP AT NIGHT
     Route: 047
     Dates: start: 202212
  2. HYDROMOOR [Concomitant]
     Dosage: FAR MORE FREQUENTLY IN THE DAY AND TWICE IN THE NIGHT

REACTIONS (7)
  - Eye irritation [Unknown]
  - Eye pain [Unknown]
  - Intraocular pressure increased [Unknown]
  - Kidney infection [Unknown]
  - Dry eye [Not Recovered/Not Resolved]
  - Condition aggravated [Not Recovered/Not Resolved]
  - Eyelid margin crusting [Not Recovered/Not Resolved]

NARRATIVE: CASE EVENT DATE: 20221201
